FAERS Safety Report 13779877 (Version 2)
Quarter: 2017Q3

REPORT INFORMATION
  Report Type: Spontaneous
  Country: US (occurrence: US)
  Receive Date: 20170723
  Receipt Date: 20170725
  Transmission Date: 20171127
  Serious: Yes (Other)
  Sender: FDA-Public Use
  Company Number: US-MYLANLABS-2017M1042592

PATIENT

DRUGS (2)
  1. FONDAPARINUX SODIUM INJECTION, USP [Suspect]
     Active Substance: FONDAPARINUX SODIUM
     Indication: THROMBOSIS
  2. FONDAPARINUX SODIUM INJECTION, USP [Suspect]
     Active Substance: FONDAPARINUX SODIUM
     Indication: PULMONARY EMBOLISM
     Dosage: 1 DF, QD
     Route: 058
     Dates: start: 20170705

REACTIONS (5)
  - Injection site bruising [Not Recovered/Not Resolved]
  - Nausea [Not Recovered/Not Resolved]
  - Injection site erythema [Not Recovered/Not Resolved]
  - Headache [Recovered/Resolved]
  - Dyspnoea [Recovering/Resolving]

NARRATIVE: CASE EVENT DATE: 201707
